FAERS Safety Report 4993399-9 (Version None)
Quarter: 2006Q2

REPORT INFORMATION
  Report Type: 
  Country: None (occurrence: None)
  Receive Date: 20060505
  Receipt Date: 20060427
  Transmission Date: 20061013
  Serious: Yes (Other)
  Sender: FDA-Public Use
  Company Number: FR-JNJFOC-20060302196

PATIENT
  Age: 55 Year
  Sex: Female
  Weight: 76 kg

DRUGS (9)
  1. CAELYX [Suspect]
     Route: 042
  2. CAELYX [Suspect]
     Route: 042
  3. NEORECORMON [Concomitant]
     Indication: DRUG USE FOR UNKNOWN INDICATION
  4. GRANOCYTE [Concomitant]
     Indication: DRUG USE FOR UNKNOWN INDICATION
  5. NEURONTIN [Concomitant]
     Indication: NEUROPATHY
     Route: 048
  6. VASTAREL [Concomitant]
     Indication: NEUROPATHY
     Route: 048
  7. RIVOTRIL [Concomitant]
     Indication: NEUROPATHY
  8. MOPRAL [Concomitant]
     Route: 048
  9. BECILAN [Concomitant]
     Route: 048

REACTIONS (1)
  - NAIL TOXICITY [None]
